APPROVED DRUG PRODUCT: VANCOMYCIN HYDROCHLORIDE
Active Ingredient: VANCOMYCIN HYDROCHLORIDE
Strength: EQ 1GM BASE/VIAL
Dosage Form/Route: INJECTABLE;INJECTION
Application: A090250 | Product #002
Applicant: PLANO PHARMACEUTICALS INC
Approved: Apr 27, 2010 | RLD: No | RS: No | Type: DISCN